FAERS Safety Report 7137604-1 (Version None)
Quarter: 2010Q4

REPORT INFORMATION
  Report Type: 
  Country: None (occurrence: None)
  Receive Date: 20101103
  Receipt Date: 20100513
  Transmission Date: 20110411
  Serious: Yes (Hospitalization)
  Sender: FDA-Public Use
  Company Number: 2010S1000273

PATIENT
  Age: 69 Year
  Sex: Male
  Weight: 90.72 kg

DRUGS (2)
  1. CUBICIN [Suspect]
     Indication: STREPTOCOCCAL INFECTION
     Dosage: 6.6 MG/KG;Q24H; IV
     Route: 042
  2. LEVAQUIN [Concomitant]

REACTIONS (1)
  - EOSINOPHILIC PNEUMONIA [None]
